FAERS Safety Report 4696559-X (Version None)
Quarter: 2005Q2

REPORT INFORMATION
  Report Type: 
  Country: None (occurrence: None)
  Receive Date: 20050620
  Receipt Date: 20050610
  Transmission Date: 20051028
  Serious: Yes (Other)
  Sender: FDA-Public Use
  Company Number: 05-000449

PATIENT
  Age: 49 Year
  Sex: Female
  Weight: 61.2 kg

DRUGS (1)
  1. FEMRING [Suspect]
     Indication: HORMONE REPLACEMENT THERAPY
     Dosage: 0.05 MG, QD, VAGINAL
     Route: 067
     Dates: start: 20050410, end: 20050508

REACTIONS (6)
  - BLOOD PRESSURE INCREASED [None]
  - CHEST PAIN [None]
  - FUNGAL INFECTION [None]
  - MIGRAINE [None]
  - MUSCLE SPASMS [None]
  - VISION BLURRED [None]
